FAERS Safety Report 8327942-9 (Version None)
Quarter: 2012Q2

REPORT INFORMATION
  Report Type: 
  Country: None (occurrence: None)
  Receive Date: 20120502
  Receipt Date: 20120424
  Transmission Date: 20120825
  Serious: Yes (Other)
  Sender: FDA-Public Use
  Company Number: GB-SP-2012-04124

PATIENT
  Sex: Male

DRUGS (3)
  1. IMMUCYST [Suspect]
     Route: 065
     Dates: start: 20111111, end: 20111111
  2. IMMUCYST [Suspect]
     Dosage: DOSE 4, 7, 8, 9
     Route: 065
     Dates: start: 20111028, end: 20120120
  3. IMMUCYST [Suspect]
     Indication: PRODUCT USED FOR UNKNOWN INDICATION
     Dosage: DOSE 1, 2, 3, 5
     Route: 065
     Dates: start: 20111007, end: 20111104

REACTIONS (5)
  - NIGHT SWEATS [None]
  - DYSPNOEA [None]
  - RESPIRATORY DISORDER [None]
  - WEIGHT DECREASED [None]
  - TUBERCULOSIS [None]
